FAERS Safety Report 4891130-9 (Version None)
Quarter: 2006Q1

REPORT INFORMATION
  Report Type: 
  Country: None (occurrence: None)
  Receive Date: 20060125
  Receipt Date: 20051121
  Transmission Date: 20060701
  Serious: Yes (Other)
  Sender: FDA-Public Use
  Company Number: US-MERCK-0511USA03546

PATIENT
  Age: 70 Year
  Sex: Male

DRUGS (3)
  1. VYTORIN [Suspect]
     Indication: BLOOD CHOLESTEROL INCREASED
     Route: 048
     Dates: start: 20050501, end: 20051201
  2. COREG [Concomitant]
     Route: 048
     Dates: start: 20050701
  3. ALTACE [Concomitant]
     Route: 048
     Dates: start: 20050701

REACTIONS (6)
  - CARDIAC DISORDER [None]
  - GENERAL SYMPTOM [None]
  - INCORRECT DOSE ADMINISTERED [None]
  - INSOMNIA [None]
  - MYALGIA [None]
  - PAIN IN EXTREMITY [None]
